FAERS Safety Report 9713360 (Version 1)
Quarter: 2013Q4

REPORT INFORMATION
  Report Type: Spontaneous
  Country: IT (occurrence: IT)
  Receive Date: 20131126
  Receipt Date: 20131126
  Transmission Date: 20140711
  Serious: Yes (Other)
  Sender: FDA-Public Use
  Company Number: IT-TEVA-446205ISR

PATIENT
  Age: 47 Year
  Sex: Female

DRUGS (1)
  1. LORAZEPAM [Suspect]
     Indication: SUICIDE ATTEMPT
     Dosage: 12.5 MG TOTAL
     Route: 048
     Dates: start: 20130807, end: 20130807

REACTIONS (3)
  - Intentional overdose [Recovering/Resolving]
  - Vertigo [Recovering/Resolving]
  - Suicide attempt [Unknown]
